FAERS Safety Report 5599388-8 (Version None)
Quarter: 2007Q4

REPORT INFORMATION
  Report Type: 
  Country: None (occurrence: None)
  Receive Date: 20071226
  Receipt Date: 20071121
  Transmission Date: 20080405
  Serious: No
  Sender: FDA-Public Use
  Company Number: 2007PV033761

PATIENT
  Age: 33 Year
  Sex: Male

DRUGS (3)
  1. SYMLIN [Suspect]
     Indication: TYPE 1 DIABETES MELLITUS
     Dosage: 15 MCG, SC
     Route: 058
     Dates: start: 20071120, end: 20071120
  2. LANTUS [Concomitant]
  3. HUMALOG [Concomitant]

REACTIONS (6)
  - ABDOMINAL DISTENSION [None]
  - CHILLS [None]
  - CONSTIPATION [None]
  - FEELING COLD [None]
  - HYPERHIDROSIS [None]
  - TREMOR [None]
